FAERS Safety Report 4805936-5 (Version None)
Quarter: 2005Q4

REPORT INFORMATION
  Report Type: 
  Country: None (occurrence: None)
  Receive Date: 20051019
  Receipt Date: 20051007
  Transmission Date: 20060501
  Serious: Yes (Other)
  Sender: FDA-Public Use
  Company Number: 505#3#2005-01700

PATIENT
  Age: 42 Year
  Sex: Female

DRUGS (1)
  1. METFIN                      (METFORMIN HYDROCHLORID [Suspect]
     Indication: GESTATIONAL DIABETES
     Dosage: 1500 MILLIGRAM  P.O.
     Route: 048

REACTIONS (2)
  - ABORTION INDUCED [None]
  - DRUG EXPOSURE DURING PREGNANCY [None]
